FAERS Safety Report 7811587-0 (Version None)
Quarter: 2011Q4

REPORT INFORMATION
  Report Type: 
  Country: None (occurrence: None)
  Receive Date: 20111011
  Receipt Date: 20111005
  Transmission Date: 20120403
  Serious: Yes (Death)
  Sender: FDA-Public Use
  Company Number: DSA_47807_2011

PATIENT
  Age: 75 Year
  Sex: Male

DRUGS (1)
  1. XENAZINE [Suspect]
     Indication: HUNTINGTON'S DISEASE
     Dosage: 75 MG, DAILY ORAL)
     Route: 048
     Dates: start: 20100208

REACTIONS (1)
  - DEATH [None]
